FAERS Safety Report 4798427-1 (Version None)
Quarter: 2005Q4

REPORT INFORMATION
  Report Type: 
  Country: None (occurrence: None)
  Receive Date: 20051014
  Receipt Date: 20051005
  Transmission Date: 20060501
  Serious: Yes (Other)
  Sender: FDA-Public Use
  Company Number: IS-NOVOPROD-247607

PATIENT
  Sex: Male

DRUGS (1)
  1. NOVOSEVEN [Suspect]
     Indication: GASTROINTESTINAL HAEMORRHAGE
     Dosage: 3.6 MG, SINGLE
     Dates: start: 20050804, end: 20050804

REACTIONS (1)
  - SUBCLAVIAN VEIN THROMBOSIS [None]
